FAERS Safety Report 10286637 (Version 2)
Quarter: 2014Q3

REPORT INFORMATION
  Report Type: Spontaneous
  Country: US (occurrence: US)
  Receive Date: 20140709
  Receipt Date: 20140709
  Transmission Date: 20150326
  Serious: Yes (Death, Hospitalization)
  Sender: FDA-Public Use
  Company Number: US-009507513-2010SP040149

PATIENT
  Sex: Female
  Weight: 100.25 kg

DRUGS (3)
  1. AMBIEN [Concomitant]
     Active Substance: ZOLPIDEM TARTRATE
     Indication: INSOMNIA
     Dosage: 5 MG, HS
     Dates: start: 20080905
  2. ZOLOFT [Concomitant]
     Active Substance: SERTRALINE HYDROCHLORIDE
     Indication: DEPRESSION
     Dosage: 150 MG, QD
     Dates: start: 20080905, end: 20081203
  3. NUVARING [Suspect]
     Active Substance: ETHINYL ESTRADIOL\ETONOGESTREL
     Indication: CONTRACEPTION
     Dates: start: 20081001

REACTIONS (9)
  - Intracranial pressure increased [Fatal]
  - Bronchitis [Unknown]
  - Migraine [Unknown]
  - Brain herniation [Fatal]
  - Hypokalaemia [Unknown]
  - Blood glucose increased [Unknown]
  - Aneurysm [Unknown]
  - Leukocytosis [Unknown]
  - Intracranial venous sinus thrombosis [Fatal]

NARRATIVE: CASE EVENT DATE: 20081124
